FAERS Safety Report 8967667 (Version 1)
Quarter: 2012Q4

REPORT INFORMATION
  Report Type: Spontaneous
  Country: US (occurrence: None)
  Receive Date: 20121206
  Receipt Date: 20121206
  Transmission Date: 20130627
  Serious: Yes (Life-Threatening, Hospitalization)
  Sender: FDA-Public Use
  Company Number: 100127-000040

PATIENT
  Age: 31 Year
  Sex: Female

DRUGS (3)
  1. MEANINGFUL BEAUTY MAINTENANCE 1 PF 20 [Suspect]
     Indication: THERAPEUTIC SKIN CARE TOPICAL
     Dosage: Once daily dermal
     Dates: start: 20100116, end: 20100119
  2. MEANINGFUL BEAUTY MAINTENANCE 1 PF 20 [Suspect]
     Dosage: Once daily dermal
     Dates: start: 20100116, end: 20100119
  3. MEANINGFUL BEAUTY ANTIOXIDANT DAY CREME SPF 20 [Suspect]
     Dosage: Once daily dermal
     Dates: start: 20100116, end: 20100119

REACTIONS (2)
  - Swelling face [None]
  - Anaphylactic reaction [None]
